FAERS Safety Report 8248161-0 (Version None)
Quarter: 2012Q1

REPORT INFORMATION
  Report Type: 
  Country: None (occurrence: None)
  Receive Date: 20120330
  Receipt Date: 20120316
  Transmission Date: 20120608
  Serious: Yes (Other)
  Sender: FDA-Public Use
  Company Number: IT-CELGENEUS-083-21880-12031996

PATIENT
  Sex: Male

DRUGS (2)
  1. CARDIOASPIRINE [Concomitant]
     Route: 065
     Dates: start: 20101217
  2. REVLIMID [Suspect]
     Indication: MULTIPLE MYELOMA
     Dosage: 10 MILLIGRAM
     Route: 048
     Dates: start: 20101217, end: 20111007

REACTIONS (1)
  - PANCREATIC CARCINOMA [None]
